FAERS Safety Report 9746399 (Version 1)
Quarter: 2013Q4

REPORT INFORMATION
  Report Type: Spontaneous
  Country: US (occurrence: US)
  Receive Date: 20131211
  Receipt Date: 20131211
  Transmission Date: 20140711
  Serious: Yes (Other)
  Sender: FDA-Public Use
  Company Number: US-PFIZER INC-2013352128

PATIENT
  Sex: Female

DRUGS (1)
  1. ZIPRASIDONE HCL [Suspect]
     Dosage: UNK

REACTIONS (3)
  - Obsessive-compulsive disorder [Unknown]
  - Agitation [Unknown]
  - Drug ineffective [Unknown]
